FAERS Safety Report 7777430-3 (Version None)
Quarter: 2011Q3

REPORT INFORMATION
  Report Type: 
  Country: None (occurrence: None)
  Receive Date: 20110922
  Receipt Date: 20110906
  Transmission Date: 20111222
  Serious: Yes (Life-Threatening, Hospitalization)
  Sender: FDA-Public Use
  Company Number: CA-2011-2148

PATIENT
  Age: 46 Year
  Sex: Female
  Weight: 68.03 kg

DRUGS (2)
  1. NAVELBINE [Suspect]
     Indication: BREAST CANCER METASTATIC
     Dates: start: 20110708, end: 20110822
  2. HERCEPTIN [Concomitant]

REACTIONS (2)
  - DIAPHRAGMATIC PARALYSIS [None]
  - PHRENIC NERVE PARALYSIS [None]
